FAERS Safety Report 7443876-6 (Version None)
Quarter: 2011Q2

REPORT INFORMATION
  Report Type: 
  Country: None (occurrence: None)
  Receive Date: 20110428
  Receipt Date: 20110321
  Transmission Date: 20111010
  Serious: Yes (Other)
  Sender: FDA-Public Use
  Company Number: US-BAYER-201018503NA

PATIENT
  Age: 38 Year
  Sex: Female
  Weight: 60.9 kg

DRUGS (18)
  1. DROSPIRENONE AND ETHINYL ESTRADIOL [Suspect]
     Indication: MENSTRUAL CYCLE MANAGEMENT
  2. IBUPROFEN [Concomitant]
  3. YASMIN [Suspect]
     Indication: ACNE
  4. SPIRONOLACTONE [Concomitant]
     Dosage: UNK
     Dates: start: 20000301, end: 20060501
  5. YASMIN [Suspect]
     Indication: CONTRACEPTION
  6. CYCLOBENZAPRINE [Concomitant]
  7. SOTRET [Concomitant]
  8. YASMIN [Suspect]
     Indication: MENSTRUAL CYCLE MANAGEMENT
     Dosage: UNK UNK, QD
     Route: 048
     Dates: start: 20010401, end: 20090101
  9. AMBIEN [Concomitant]
  10. DOXYCYCLINE [Concomitant]
  11. NYSTATIN [Concomitant]
  12. LUSTRA [Concomitant]
  13. CITALOPRAM [Concomitant]
  14. DROSPIRENONE AND ETHINYL ESTRADIOL [Suspect]
     Indication: ACNE
     Dosage: UNK UNK, QD
     Dates: start: 20010401, end: 20081201
  15. HISTINEX [Concomitant]
  16. RESPIRATORY SYSTEM [Concomitant]
     Indication: PRODUCT USED FOR UNKNOWN INDICATION
  17. DIFFERIN [Concomitant]
  18. NAPROXEN [Concomitant]

REACTIONS (3)
  - DEEP VEIN THROMBOSIS [None]
  - PAIN [None]
  - THROMBOSIS [None]
